FAERS Safety Report 4990836-0 (Version None)
Quarter: 2006Q2

REPORT INFORMATION
  Report Type: 
  Country: None (occurrence: None)
  Receive Date: 20060503
  Receipt Date: 20060124
  Transmission Date: 20061013
  Serious: Yes (Life-Threatening)
  Sender: FDA-Public Use
  Company Number: JP-ABBOTT-06P-087-0323175-00

PATIENT
  Sex: Male
  Weight: 65 kg

DRUGS (8)
  1. SEVOFLURANE [Suspect]
     Indication: GENERAL ANAESTHESIA
     Dosage: 2-2.5%
     Route: 055
     Dates: start: 20040713, end: 20040713
  2. FENTANYL CITRATE [Concomitant]
     Indication: ANAESTHESIA
     Route: 042
     Dates: start: 20040713, end: 20040713
  3. DROPERIDOL [Concomitant]
     Indication: ANAESTHESIA
     Route: 042
     Dates: start: 20040713, end: 20040713
  4. FLURBIPROFEN AXETIL [Concomitant]
     Indication: ANALGESIC THERAPY
     Route: 042
     Dates: start: 20040713, end: 20040713
  5. LIDOCAINE [Concomitant]
     Indication: ANALGESIC THERAPY
     Dates: start: 20040713, end: 20040713
  6. ISEPAMICIN SULFATE [Concomitant]
     Indication: INFECTION PROPHYLAXIS
     Dates: start: 20040713, end: 20040713
  7. PIPERACILLIN SODIUM [Concomitant]
     Indication: INFECTION PROPHYLAXIS
     Dates: start: 20040713, end: 20040713
  8. RANITIDINE HYDROCHLORIDE [Concomitant]
     Indication: ANAESTHETIC PREMEDICATION
     Route: 042
     Dates: start: 20040713, end: 20040717

REACTIONS (2)
  - PYREXIA [None]
  - RHABDOMYOLYSIS [None]
